FAERS Safety Report 5551588-9 (Version None)
Quarter: 2007Q4

REPORT INFORMATION
  Report Type: 
  Country: None (occurrence: None)
  Receive Date: 20071212
  Receipt Date: 20070531
  Transmission Date: 20080405
  Serious: No
  Sender: FDA-Public Use
  Company Number: US-AMGEN-KDL223280

PATIENT
  Sex: Female

DRUGS (4)
  1. ENBREL [Suspect]
     Indication: RHEUMATOID ARTHRITIS
     Route: 058
     Dates: start: 20060629, end: 20070426
  2. METHOTREXATE [Concomitant]
     Dates: start: 20060101
  3. VOLTAREN [Concomitant]
  4. FOLIC ACID [Concomitant]

REACTIONS (4)
  - DRUG INEFFECTIVE [None]
  - MUSCULOSKELETAL STIFFNESS [None]
  - PAIN [None]
  - SWELLING [None]
